FAERS Safety Report 17766436 (Version 1)
Quarter: 2020Q2

REPORT INFORMATION
  Report Type: Spontaneous
  Country: BE (occurrence: BE)
  Receive Date: 20200511
  Receipt Date: 20200511
  Transmission Date: 20200714
  Serious: Yes (Life-Threatening, Hospitalization)
  Sender: FDA-Public Use
  Company Number: BE-AMNEAL PHARMACEUTICALS-2020-AMRX-01314

PATIENT
  Age: 40 Year
  Sex: Male

DRUGS (1)
  1. METHYLPREDNISOLONE SODIUM SUCCINATE. [Suspect]
     Active Substance: METHYLPREDNISOLONE SODIUM SUCCINATE
     Indication: PRODUCT USED FOR UNKNOWN INDICATION
     Dosage: 32 MILLIGRAM, SINGLE (32 MILLIGRAM, EVENING (1 TABLET))
     Route: 065

REACTIONS (3)
  - Familial periodic paralysis [Recovered/Resolved]
  - Bradyarrhythmia [Recovered/Resolved]
  - Cardiac arrest [Recovered/Resolved]
